FAERS Safety Report 22071950 (Version 1)
Quarter: 2023Q1

REPORT INFORMATION
  Report Type: Other
  Country: CZ (occurrence: CZ)
  Receive Date: 20230308
  Receipt Date: 20230308
  Transmission Date: 20230418
  Serious: Yes (Hospitalization, Other)
  Sender: FDA-Public Use
  Company Number: None

PATIENT
  Age: 25 Year
  Sex: Male

DRUGS (9)
  1. MEROPENEM [Suspect]
     Active Substance: MEROPENEM
     Indication: Staphylococcal sepsis
     Dosage: 2 GRAM, Q6H
     Route: 042
     Dates: start: 2021
  2. VANCOMYCIN [Suspect]
     Active Substance: VANCOMYCIN
     Indication: Staphylococcal sepsis
     Dosage: 1 GRAM, BID (12 H)
     Route: 042
     Dates: start: 2021
  3. AVIBACTAM SODIUM\CEFTAZIDIME [Suspect]
     Active Substance: AVIBACTAM SODIUM\CEFTAZIDIME
     Indication: Staphylococcal sepsis
     Dosage: 2.5 GRAM, Q8H
     Route: 042
     Dates: start: 2021
  4. AMIKACIN [Suspect]
     Active Substance: AMIKACIN
     Indication: Staphylococcal sepsis
     Dosage: 1 GRAM, BID (12 H)
     Route: 042
     Dates: start: 2021
  5. LINEZOLID [Suspect]
     Active Substance: LINEZOLID
     Indication: Staphylococcal sepsis
     Dosage: 600 MILLIGRAM, BID (12 H)
     Route: 042
     Dates: start: 2021
  6. ANIDULAFUNGIN [Concomitant]
     Active Substance: ANIDULAFUNGIN
     Indication: Hydrothorax
     Dosage: 200 MILLIGRAM
     Route: 065
     Dates: start: 2021
  7. ANIDULAFUNGIN [Concomitant]
     Active Substance: ANIDULAFUNGIN
     Dosage: 100 MILLIGRAM
     Route: 042
     Dates: start: 2021
  8. NOREPINEPHRINE [Concomitant]
     Active Substance: NOREPINEPHRINE
     Indication: Septic shock
     Dosage: 0.6 MCG/KG/MIN
     Route: 065
     Dates: start: 2021
  9. NOREPINEPHRINE [Concomitant]
     Active Substance: NOREPINEPHRINE
     Dosage: 0.2 MCG/KG/MIN
     Route: 065
     Dates: start: 2021

REACTIONS (1)
  - Cutaneous mucormycosis [Recovered/Resolved]

NARRATIVE: CASE EVENT DATE: 20210101
